FAERS Safety Report 10021236 (Version 1)
Quarter: 2014Q1

REPORT INFORMATION
  Report Type: Spontaneous
  Country: GB (occurrence: None)
  Receive Date: 20140313
  Receipt Date: 20140313
  Transmission Date: 20141002
  Serious: Yes (Hospitalization, Other)
  Sender: FDA-Public Use
  Company Number: AUR-APL-2014-02667

PATIENT
  Age: 57 Year
  Sex: Male

DRUGS (16)
  1. AMOXICILLIN+CLAVULANIC ACID [Suspect]
     Indication: INFECTIVE EXACERBATION OF CHRONIC OBSTRUCTIVE AIRWAYS DISEASE
     Route: 048
  2. SIMVASTATIN [Suspect]
     Indication: PRODUCT USED FOR UNKNOWN INDICATION
  3. WARFARIN [Suspect]
     Indication: DEEP VEIN THROMBOSIS
     Dosage: 10 MG, FIRST 2 DAYS, UNKNOWN
  4. ASPIRIN [Suspect]
     Indication: PRODUCT USED FOR UNKNOWN INDICATION
  5. QUININE (QUININE) [Concomitant]
  6. RAMIPRIL (RAMIPRIL) [Concomitant]
  7. CARBOCISTEINE (CARBOCISTEINE) [Concomitant]
  8. LEVOTHROXINE (LEVOTHYROXINE) [Concomitant]
  9. BUDESONIDE/FORMOTEROL FUMARATE (BUDESONIDE W/FORMOTEROL FUMARATE) [Concomitant]
  10. TIOTROPIUM (TIOTROPIUM) (TIOTROPIUM) [Concomitant]
  11. SALBUTAMOL (SALBUTAMOL) [Concomitant]
  12. PREDNISOLONE (PREDNISOLONE) [Concomitant]
  13. FRAGMIN (DALTEPARIN SODIUM) SOLUTION FOR INJECTION [Concomitant]
  14. BENZYLPENICILLIN (BENZYLPENICILLIN) [Concomitant]
  15. FLUCLOXACILLIN (FLUCLOXACILLIN) [Concomitant]
  16. OCTAPLEX (OCPLEX) [Concomitant]

REACTIONS (5)
  - Infective exacerbation of chronic obstructive airways disease [None]
  - International normalised ratio increased [None]
  - Haemoglobin decreased [None]
  - Compartment syndrome [None]
  - Drug interaction [None]
